FAERS Safety Report 6256745 (Version 2)
Quarter: 2021Q2

REPORT INFORMATION
  Report Type: Report from Study
  Country: KR (occurrence: KR)
  Receive Date: 20070308
  Receipt Date: 20210526
  Transmission Date: 20210717
  Serious: Yes (Death, Other)
  Sender: FDA-Public Use
  Company Number: KR-GILEAD-2007-0011452

PATIENT
  Age: 52 Year
  Sex: Female

DRUGS (6)
  1. CEFOXITIN SODIUM [Concomitant]
     Active Substance: CEFOXITIN SODIUM
     Dates: start: 20060117, end: 20060120
  2. SILYMARIN [Concomitant]
     Active Substance: DIETARY SUPPLEMENT\HERBALS\MILK THISTLE
     Dates: start: 20050501, end: 20060306
  3. HEPSERA [Suspect]
     Active Substance: ADEFOVIR DIPIVOXIL
     Indication: PRODUCT USED FOR UNKNOWN INDICATION
     Dosage: 10 MG
     Route: 048
     Dates: start: 20060220, end: 20060306
  4. LAMIVUDINE. [Concomitant]
     Active Substance: LAMIVUDINE
     Dates: start: 20050516, end: 20060306
  5. ADEFOVIR DIPIVOXIL. [Suspect]
     Active Substance: ADEFOVIR DIPIVOXIL
     Indication: HEPATITIS B
     Dosage: 10 MG, QD
     Route: 048
     Dates: start: 20060220, end: 20060306
  6. URSODEOXYCHOLIC ACID [Concomitant]
     Active Substance: URSODIOL
     Dates: start: 20050501, end: 20060306

REACTIONS (2)
  - Hepatic failure [Fatal]
  - Ascites [Fatal]
